FAERS Safety Report 5328057-4 (Version None)
Quarter: 2007Q2

REPORT INFORMATION
  Report Type: 
  Country: None (occurrence: None)
  Receive Date: 20070514
  Receipt Date: 20070502
  Transmission Date: 20071010
  Serious: Yes (Other)
  Sender: FDA-Public Use
  Company Number: 2007US001037

PATIENT
  Sex: Male

DRUGS (1)
  1. PROGRAF [Suspect]
     Indication: DRUG USE FOR UNKNOWN INDICATION
     Dosage: TOPICAL
     Route: 061

REACTIONS (6)
  - ALOPECIA [None]
  - ERYTHEMA [None]
  - LUNG NEOPLASM MALIGNANT [None]
  - MYCOSIS FUNGOIDES [None]
  - NEOPLASM SKIN [None]
  - SKIN EXFOLIATION [None]
